FAERS Safety Report 9265349 (Version 1)
Quarter: 2013Q2

REPORT INFORMATION
  Report Type: Report from Study
  Country: US (occurrence: US)
  Receive Date: 20130430
  Receipt Date: 20130430
  Transmission Date: 20140414
  Serious: Yes (Hospitalization)
  Sender: FDA-Public Use
  Company Number: US-RB-027230-11

PATIENT
  Age: 54 Year
  Sex: Male

DRUGS (4)
  1. SUBOXONE TABLET [Suspect]
     Indication: PRODUCT USED FOR UNKNOWN INDICATION
     Dosage: DOSING DETAILS UNKNOWN
     Route: 065
  2. SUBUTEX [Suspect]
     Indication: PRODUCT USED FOR UNKNOWN INDICATION
     Dosage: DOSING DETAILS UNKNOWN
     Route: 065
  3. SUBOXONE FILM [Suspect]
     Indication: PAIN MANAGEMENT
     Dosage: SUBOXONE FILM
     Route: 060
  4. SUBOXONE FILM [Suspect]
     Indication: PAIN MANAGEMENT
     Dosage: SUBOXONE FILM
     Route: 060

REACTIONS (13)
  - Underdose [Recovered/Resolved]
  - Decreased appetite [Not Recovered/Not Resolved]
  - Fatigue [Not Recovered/Not Resolved]
  - Constipation [Not Recovered/Not Resolved]
  - Depressed mood [Not Recovered/Not Resolved]
  - Drug effect increased [Not Recovered/Not Resolved]
  - Feeling abnormal [Not Recovered/Not Resolved]
  - Asthenopia [Recovered/Resolved]
  - Headache [Recovered/Resolved]
  - Lethargy [Not Recovered/Not Resolved]
  - Acute psychosis [Recovered/Resolved]
  - Drug ineffective for unapproved indication [Recovered/Resolved]
  - Condition aggravated [Recovered/Resolved]
